FAERS Safety Report 9584644 (Version 2)
Quarter: 2014Q1

REPORT INFORMATION
  Report Type: Spontaneous
  Country: US (occurrence: US)
  Receive Date: 20131002
  Receipt Date: 20140228
  Transmission Date: 20141002
  Serious: No
  Sender: FDA-Public Use
  Company Number: US-AMGEN-USASP2013054522

PATIENT
  Age: 59 Year
  Sex: Male
  Weight: 77.1 kg

DRUGS (6)
  1. ENBREL [Suspect]
     Indication: PRODUCT USED FOR UNKNOWN INDICATION
     Dosage: 50 MG, ONCE A WEEK
     Route: 058
     Dates: start: 201304
  2. HYDROXYCHLOROQUINE [Concomitant]
     Dosage: 200 MG, UNK
     Route: 065
  3. PREVACID [Concomitant]
     Dosage: 15 MG, UNK
     Route: 065
  4. MOBIC [Concomitant]
     Dosage: 7.5 MG, UNK
     Route: 065
  5. VITAMIN C                          /00008001/ [Concomitant]
     Dosage: 500 MG, UNK
     Route: 065
  6. MULTIVITAMINS, PLAIN [Concomitant]
     Dosage: UNK
     Route: 065

REACTIONS (2)
  - Laceration [Unknown]
  - Injection site bruising [Unknown]
